FAERS Safety Report 4291194-X (Version None)
Quarter: 2004Q1

REPORT INFORMATION
  Report Type: 
  Country: None (occurrence: None)
  Receive Date: 20040211
  Receipt Date: 20031111
  Transmission Date: 20041129
  Serious: No
  Sender: FDA-Public Use
  Company Number: US-GLAXOSMITHKLINE-A0439227A

PATIENT
  Age: 36 Year
  Sex: Male

DRUGS (2)
  1. PAXIL [Suspect]
     Indication: MAJOR DEPRESSION
     Dosage: 20MG IN THE MORNING
     Route: 048
     Dates: start: 19960101, end: 20031027
  2. NONE [Concomitant]

REACTIONS (1)
  - INSOMNIA [None]
